FAERS Safety Report 18065803 (Version 1)
Quarter: 2020Q3

REPORT INFORMATION
  Report Type: Spontaneous
  Country: US (occurrence: US)
  Receive Date: 20200724
  Receipt Date: 20200724
  Transmission Date: 20201103
  Serious: Yes (Other)
  Sender: FDA-Public Use
  Company Number: None

PATIENT
  Age: 56 Year
  Sex: Female
  Weight: 65.25 kg

DRUGS (7)
  1. PTU [Concomitant]
     Active Substance: PROPYLTHIOURACIL
  2. MULTI VITAMIN [Concomitant]
     Active Substance: VITAMINS
  3. LANTUS [Concomitant]
     Active Substance: INSULIN GLARGINE
  4. ROSUVASTATIN. [Suspect]
     Active Substance: ROSUVASTATIN
     Indication: BLOOD CHOLESTEROL INCREASED
     Dosage: ?          QUANTITY:1 TABLET(S);?
     Route: 048
     Dates: start: 20200609, end: 20200614
  5. IBUPROFEN. [Concomitant]
     Active Substance: IBUPROFEN
  6. VITAMIN B12 [Concomitant]
     Active Substance: CYANOCOBALAMIN
  7. NOVOLOG [Concomitant]
     Active Substance: INSULIN ASPART

REACTIONS (5)
  - Headache [None]
  - Myalgia [None]
  - Back pain [None]
  - Decreased appetite [None]
  - Neck pain [None]

NARRATIVE: CASE EVENT DATE: 20200622
